FAERS Safety Report 13265757 (Version 2)
Quarter: 2017Q1

REPORT INFORMATION
  Report Type: Spontaneous
  Country: IL (occurrence: IL)
  Receive Date: 20170223
  Receipt Date: 20170301
  Transmission Date: 20170428
  Serious: Yes (Death)
  Sender: FDA-Public Use
  Company Number: IL-SHIRE-IL201704000

PATIENT
  Age: 9 Decade
  Sex: Male

DRUGS (1)
  1. FOSRENOL [Suspect]
     Active Substance: LANTHANUM CARBONATE
     Indication: PRODUCT USED FOR UNKNOWN INDICATION
     Dosage: 1000 MG, 3X/DAY:TID
     Route: 048
     Dates: start: 201603

REACTIONS (1)
  - Diabetic complication [Fatal]
